FAERS Safety Report 15532236 (Version 1)
Quarter: 2018Q4

REPORT INFORMATION
  Report Type: Report from Study
  Country: CN (occurrence: CN)
  Receive Date: 20181019
  Receipt Date: 20181019
  Transmission Date: 20190205
  Serious: Yes (Other)
  Sender: FDA-Public Use
  Company Number: CN-ACCORD-064046

PATIENT
  Age: 13 Year
  Sex: Male

DRUGS (4)
  1. CYTARABINE/CYTARABINE HYDROCHLORIDE/CYTARABINE OCFOSFATE [Suspect]
     Active Substance: CYTARABINE
     Indication: ACUTE MYELOID LEUKAEMIA
     Route: 037
  2. DEXAMETHASONE. [Concomitant]
     Active Substance: DEXAMETHASONE
     Indication: ACUTE MYELOID LEUKAEMIA
     Route: 037
  3. METHOTREXATE. [Suspect]
     Active Substance: METHOTREXATE
     Indication: ACUTE MYELOID LEUKAEMIA
     Route: 037
  4. VINCRISTINE [Concomitant]
     Active Substance: VINCRISTINE
     Indication: ACUTE MYELOID LEUKAEMIA
     Route: 042

REACTIONS (2)
  - Paraplegia [Recovered/Resolved]
  - Spinal cord injury [Recovered/Resolved]
